FAERS Safety Report 7376574-8 (Version None)
Quarter: 2011Q1

REPORT INFORMATION
  Report Type: 
  Country: None (occurrence: None)
  Receive Date: 20110325
  Receipt Date: 20110322
  Transmission Date: 20110831
  Serious: Yes (Other)
  Sender: FDA-Public Use
  Company Number: US-GENZYME-THYM-1002368

PATIENT
  Age: 16 Month
  Sex: Female

DRUGS (9)
  1. CELLCEPT [Concomitant]
     Indication: PROPHYLAXIS AGAINST TRANSPLANT REJECTION
     Dosage: 600 MG/M2, BID
     Route: 042
  2. CYTOGAM [Concomitant]
     Indication: ANTIVIRAL PROPHYLAXIS
     Dosage: 1 UNK, UNK
     Route: 042
  3. TACROLIMUS [Concomitant]
     Indication: LIVER TRANSPLANT REJECTION
     Dosage: 1 MG, UNK
     Route: 042
  4. PLASMA SUBSTITUTES AND PLASMA PROTE FRACTIONS [Concomitant]
     Indication: LIVER TRANSPLANT REJECTION
  5. TACROLIMUS [Concomitant]
     Indication: PROPHYLAXIS AGAINST TRANSPLANT REJECTION
     Dosage: 0.7 MG, BID
     Route: 042
  6. PLASMA SUBSTITUTES AND PLASMA PROTE FRACTIONS [Concomitant]
     Indication: PLASMAPHERESIS
  7. SOLU-MEDROL [Concomitant]
     Indication: PROPHYLAXIS AGAINST TRANSPLANT REJECTION
     Dosage: 10 MG/KG, UNK
     Route: 042
  8. THYMOGLOBULIN [Suspect]
     Indication: PROPHYLAXIS AGAINST TRANSPLANT REJECTION
     Dosage: 1.5 MG/KG, ONCE
     Route: 042
  9. THYMOGLOBULIN [Suspect]
     Indication: LIVER TRANSPLANT REJECTION
     Dosage: 1.5 MG/KG, UNK

REACTIONS (2)
  - TRANSPLANT REJECTION [None]
  - LIVER TRANSPLANT REJECTION [None]
